FAERS Safety Report 23431979 (Version 1)
Quarter: 2024Q1

REPORT INFORMATION
  Report Type: Spontaneous
  Country: US (occurrence: None)
  Receive Date: 20240122
  Receipt Date: 20240122
  Transmission Date: 20240410
  Serious: No
  Sender: FDA-Public Use
  Company Number: None

PATIENT
  Age: 71 Year
  Sex: Male

DRUGS (2)
  1. CIBINQO [Suspect]
     Active Substance: ABROCITINIB
     Indication: Dermatitis atopic
     Dosage: TAKE 1 TABLET BY MOUTH DAILY AS DIRECTED.  ?
     Route: 048
     Dates: start: 202211
  2. CIBINQO [Suspect]
     Active Substance: ABROCITINIB
     Indication: Transient acantholytic dermatosis

REACTIONS (1)
  - Kidney infection [None]
